FAERS Safety Report 4343916-7 (Version None)
Quarter: 2004Q2

REPORT INFORMATION
  Report Type: 
  Country: None (occurrence: None)
  Receive Date: 20040419
  Receipt Date: 20040406
  Transmission Date: 20050107
  Serious: Yes (Hospitalization)
  Sender: FDA-Public Use
  Company Number: US-JNJFOC-20040401314

PATIENT
  Age: 66 Year
  Sex: Female

DRUGS (15)
  1. INFLIXIMAB (INFLIXIMAB, RECOMBINANT) LYOPHILIZED POWDER [Suspect]
     Indication: RHEUMATOID ARTHRITIS
     Dosage: INTRAVENOUS
     Route: 042
     Dates: start: 20010711
  2. ALBUTEROL [Concomitant]
  3. ATIVAN [Concomitant]
  4. MULTIVITAMIN (MULTIVITAMINS) [Concomitant]
  5. NORVASC [Concomitant]
  6. ADIRAX (HYDROXYZINE HYDROCHLORIDE) [Concomitant]
  7. DARVOCET [Concomitant]
  8. PLAQUENIL [Concomitant]
  9. PREDNISONE (RPEDNISONE) [Concomitant]
  10. PRILOSEC [Concomitant]
  11. TRIAMTERENE (TRIAMTERENE) [Concomitant]
  12. ZYRTEC [Concomitant]
  13. GLUCOVANCE (GLIBOMET) [Concomitant]
  14. CALCIUM PLUS D (CALCIUM) [Concomitant]
  15. MIACALCIN [Concomitant]

REACTIONS (2)
  - ANORECTAL DISORDER [None]
  - COLECTOMY [None]
